FAERS Safety Report 5672694-4 (Version None)
Quarter: 2008Q1

REPORT INFORMATION
  Report Type: 
  Country: None (occurrence: None)
  Receive Date: 20080319
  Receipt Date: 20070129
  Transmission Date: 20080703
  Serious: No
  Sender: FDA-Public Use
  Company Number: US-KINGPHARMUSA00001-K200700108

PATIENT

DRUGS (1)
  1. ALTACE [Suspect]
     Route: 048

REACTIONS (2)
  - HEART RATE DECREASED [None]
  - PALPITATIONS [None]
